FAERS Safety Report 20727542 (Version 1)
Quarter: 2022Q2

REPORT INFORMATION
  Report Type: Other
  Country: US (occurrence: None)
  Receive Date: 20220419
  Receipt Date: 20220419
  Transmission Date: 20220720
  Serious: Yes (Other)
  Sender: FDA-Public Use
  Company Number: US-ROCHE-2925861

PATIENT
  Age: 54 Year
  Sex: Male

DRUGS (11)
  1. BEVACIZUMAB [Suspect]
     Active Substance: BEVACIZUMAB
     Indication: Capillary leak syndrome
     Route: 065
  2. PEMBROLIZUMAB [Concomitant]
     Active Substance: PEMBROLIZUMAB
  3. TALIMOGENE LAHERPAREPVEC [Concomitant]
     Active Substance: TALIMOGENE LAHERPAREPVEC
  4. ALBUMIN HUMAN [Concomitant]
     Active Substance: ALBUMIN HUMAN
     Dosage: 25 G/DAY, EVERY OTHER DAY
  5. FUROSEMIDE [Concomitant]
     Active Substance: FUROSEMIDE
     Dosage: 40 TO 80 MG/D
     Route: 042
  6. AXITINIB [Concomitant]
     Active Substance: AXITINIB
  7. MIDODRINE [Concomitant]
     Active Substance: MIDODRINE
     Route: 048
  8. AMILORIDE [Concomitant]
     Active Substance: AMILORIDE
  9. BUMETANIDE [Concomitant]
     Active Substance: BUMETANIDE
  10. OCTREOTIDE [Concomitant]
     Active Substance: OCTREOTIDE
  11. TOCILIZUMAB [Concomitant]
     Active Substance: TOCILIZUMAB
     Route: 065

REACTIONS (1)
  - Deep vein thrombosis [Unknown]
